FAERS Safety Report 19060386 (Version 2)
Quarter: 2021Q2

REPORT INFORMATION
  Report Type: Report from Study
  Country: US (occurrence: US)
  Receive Date: 20210325
  Receipt Date: 20210420
  Transmission Date: 20210717
  Serious: Yes (Hospitalization)
  Sender: FDA-Public Use
  Company Number: US-PFIZER INC-2019-05651

PATIENT
  Age: 63 Year
  Sex: Male
  Weight: 94.33 kg

DRUGS (17)
  1. IPILIMUMAB [Suspect]
     Active Substance: IPILIMUMAB
     Indication: COLORECTAL CANCER METASTATIC
     Dosage: 95.5 MG, CYCLIC (EVERY 8 WEEKS)
     Route: 042
     Dates: start: 20190107, end: 20190107
  2. TRICOR [Concomitant]
     Active Substance: FENOFIBRATE
     Indication: DYSLIPIDAEMIA
     Dosage: 145.00 MG, 1X/DAY
     Route: 048
     Dates: start: 2002
  3. FLONASE [MOMETASONE FUROATE] [Concomitant]
     Active Substance: MOMETASONE FUROATE
     Indication: COUGH
     Dosage: 2 SPRAY, PRN
     Route: 055
     Dates: start: 2012
  4. LISINOPRIL. [Concomitant]
     Active Substance: LISINOPRIL
     Indication: HYPERTENSION
     Dosage: 40 MG, 1X/DAY
     Route: 048
     Dates: start: 20180920
  5. EMLA [Concomitant]
     Active Substance: LIDOCAINE\PRILOCAINE
     Indication: PROPHYLAXIS
     Dosage: APPLY TO PORT AS DIRECTED, AS NEEDED
     Route: 061
     Dates: start: 2016
  6. NIVOLUMAB [Suspect]
     Active Substance: NIVOLUMAB
     Indication: COLORECTAL CANCER METASTATIC
     Dosage: 480 MG, CYCLIC (EVERY 4 WEEKS)
     Route: 042
     Dates: start: 20190107, end: 20190204
  7. ANORO [Concomitant]
     Active Substance: UMECLIDINIUM BROMIDE\VILANTEROL TRIFENATATE
     Indication: CHRONIC OBSTRUCTIVE PULMONARY DISEASE
     Dosage: [UMECLIDINIUM BROMIDE 62.5]/ [VILANTEROL TRIFENATATE 25], QD, PRN
     Route: 055
     Dates: start: 201901
  8. ASPIRIN [ACETYLSALICYLIC ACID] [Concomitant]
     Active Substance: ASPIRIN
     Indication: CORONARY ARTERIAL STENT INSERTION
     Dosage: 81 MG, 1X/DAY
     Route: 048
     Dates: start: 2014
  9. METAGLIP [Concomitant]
     Active Substance: GLIPIZIDE\METFORMIN HYDROCHLORIDE
     Indication: DIABETES MELLITUS
     Dosage: 10?1000 MG, BID
     Route: 048
     Dates: start: 20180920
  10. IBUPROFEN. [Concomitant]
     Active Substance: IBUPROFEN
     Indication: MUSCULOSKELETAL PAIN
     Dosage: 200.00 MG, AS NEEDED
     Route: 048
     Dates: start: 201807
  11. GAS?X [Concomitant]
     Active Substance: DIMETHICONE
     Indication: FLATULENCE
     Dosage: 1 TABLET, PRN
     Route: 048
     Dates: start: 2017
  12. NYSTATIN. [Concomitant]
     Active Substance: NYSTATIN
     Indication: RASH
     Dosage: 100000 IU/G, 2X/DAY, POWDER
     Route: 061
     Dates: start: 20190129
  13. NYSTATIN. [Concomitant]
     Active Substance: NYSTATIN
     Indication: RASH
     Dosage: UNK UNK, 2X/DAY
     Route: 061
     Dates: start: 20190129
  14. BINIMETINIB [Suspect]
     Active Substance: BINIMETINIB
     Indication: COLORECTAL CANCER METASTATIC
     Dosage: 30.00 MG, 2X/DAY
     Route: 048
     Dates: start: 20190107, end: 20190226
  15. FLEXERIL [Concomitant]
     Active Substance: CYCLOBENZAPRINE HYDROCHLORIDE
     Indication: ARTHRALGIA
     Dosage: 5.00 MG, AS NEEDED
     Route: 048
     Dates: start: 201807
  16. FLONASE [MOMETASONE FUROATE] [Concomitant]
     Active Substance: MOMETASONE FUROATE
     Indication: SINUS CONGESTION
  17. TOPROL XL [Concomitant]
     Active Substance: METOPROLOL SUCCINATE
     Indication: HYPERTENSION
     Dosage: 50.00 MG, 1X/DAY
     Route: 048
     Dates: start: 20181024

REACTIONS (1)
  - Rash macular [Recovered/Resolved]

NARRATIVE: CASE EVENT DATE: 20190228
